FAERS Safety Report 23138683 (Version 1)
Quarter: 2023Q4

REPORT INFORMATION
  Report Type: Spontaneous
  Country: CN (occurrence: None)
  Receive Date: 20231102
  Receipt Date: 20231102
  Transmission Date: 20240110
  Serious: Yes (Other)
  Sender: FDA-Public Use
  Company Number: 2023A245454

PATIENT
  Age: 3391 Week
  Sex: Female
  Weight: 47 kg

DRUGS (1)
  1. DAPAGLIFLOZIN [Suspect]
     Active Substance: DAPAGLIFLOZIN
     Indication: Diabetes mellitus
     Route: 048
     Dates: start: 20230901, end: 20231024

REACTIONS (1)
  - Marasmus [Unknown]

NARRATIVE: CASE EVENT DATE: 20231024
